FAERS Safety Report 11428183 (Version 1)
Quarter: 2015Q3

REPORT INFORMATION
  Report Type: Spontaneous
  Country: US (occurrence: US)
  Receive Date: 20150828
  Receipt Date: 20150828
  Transmission Date: 20151125
  Serious: No
  Sender: FDA-Public Use
  Company Number: US-ROCHE-1013740

PATIENT
  Age: 48 Year
  Sex: Female

DRUGS (3)
  1. PEGASYS [Suspect]
     Active Substance: PEGINTERFERON ALFA-2A
     Indication: CHRONIC HEPATITIS C
     Dosage: 2 YEARS AGO START, ON FOR 6 MONTHS
     Route: 058
     Dates: start: 20110927
  2. COPEGUS [Suspect]
     Active Substance: RIBAVIRIN
     Indication: CHRONIC HEPATITIS C
     Dosage: 2 YEARS AGO START, ON FOR 6 MONTHS
     Route: 048
  3. INCIVEK [Suspect]
     Active Substance: TELAPREVIR
     Indication: CHRONIC HEPATITIS C
     Dosage: 2 YEARS AGO START
     Route: 065

REACTIONS (9)
  - Insomnia [Unknown]
  - Fatigue [Unknown]
  - Diarrhoea [Unknown]
  - Joint swelling [Unknown]
  - Pain [Unknown]
  - Malaise [Unknown]
  - Muscle spasms [Not Recovered/Not Resolved]
  - Musculoskeletal stiffness [Not Recovered/Not Resolved]
  - Vomiting [Unknown]

NARRATIVE: CASE EVENT DATE: 201307
